FAERS Safety Report 15897665 (Version 8)
Quarter: 2020Q3

REPORT INFORMATION
  Report Type: Report from Study
  Country: US (occurrence: US)
  Receive Date: 20190131
  Receipt Date: 20200816
  Transmission Date: 20201102
  Serious: Yes (Other)
  Sender: FDA-Public Use
  Company Number: PHEH2019US004365

PATIENT
  Age: 62 Year
  Sex: Female
  Weight: 43.54 kg

DRUGS (1)
  1. GILENYA [Suspect]
     Active Substance: FINGOLIMOD HYDROCHLORIDE
     Indication: MULTIPLE SCLEROSIS
     Dosage: 0.5 MG, QD
     Route: 048
     Dates: start: 20170216

REACTIONS (17)
  - Seizure [Unknown]
  - Scar [Not Recovered/Not Resolved]
  - Spinal fracture [Unknown]
  - Fall [Unknown]
  - Decreased appetite [Unknown]
  - Pneumonia [Unknown]
  - Weight decreased [Recovering/Resolving]
  - Rib fracture [Unknown]
  - Influenza [Unknown]
  - Rotator cuff syndrome [Unknown]
  - Memory impairment [Unknown]
  - Pleurisy [Recovering/Resolving]
  - Pain [Not Recovered/Not Resolved]
  - Nerve compression [Unknown]
  - Depressed mood [Unknown]
  - Dizziness [Unknown]
  - Upper limb fracture [Unknown]

NARRATIVE: CASE EVENT DATE: 201811
